FAERS Safety Report 24987649 (Version 1)
Quarter: 2025Q1

REPORT INFORMATION
  Report Type: Spontaneous
  Country: US (occurrence: US)
  Receive Date: 20250219
  Receipt Date: 20250219
  Transmission Date: 20250408
  Serious: Yes (Death, Hospitalization, Other)
  Sender: SANOFI AVENTIS
  Company Number: US-SA-2025SA037685

PATIENT
  Age: 80 Year
  Sex: Female
  Weight: 115 kg

DRUGS (23)
  1. DUPIXENT [Suspect]
     Active Substance: DUPILUMAB
     Indication: Asthma
     Route: 058
     Dates: start: 20200221, end: 20200221
  2. DUPIXENT [Suspect]
     Active Substance: DUPILUMAB
     Dosage: 300 MG, QOW
     Route: 058
     Dates: start: 20200306
  3. TRELEGY ELLIPTA [Concomitant]
     Active Substance: FLUTICASONE FUROATE\UMECLIDINIUM BROMIDE\VILANTEROL TRIFENATATE
  4. DILTIAZEM [Concomitant]
     Active Substance: DILTIAZEM
  5. VITAMINS [Concomitant]
     Active Substance: VITAMINS
  6. PROPRANOLOL HYDROCHLORIDE [Concomitant]
     Active Substance: PROPRANOLOL HYDROCHLORIDE
  7. PRIMIDONE [Concomitant]
     Active Substance: PRIMIDONE
  8. PANTOPRAZOLE SODIUM [Concomitant]
     Active Substance: PANTOPRAZOLE SODIUM
  9. NYSTATIN [Concomitant]
     Active Substance: NYSTATIN
  10. LEVOTHYROXINE SODIUM [Concomitant]
     Active Substance: LEVOTHYROXINE SODIUM
  11. HYDROCORTISONE [Concomitant]
     Active Substance: HYDROCORTISONE
  12. GABAPENTIN [Concomitant]
     Active Substance: GABAPENTIN
  13. GABAPENTIN [Concomitant]
     Active Substance: GABAPENTIN
  14. FUROSEMIDE [Concomitant]
     Active Substance: FUROSEMIDE
  15. FENOFIBRATE [Concomitant]
     Active Substance: FENOFIBRATE
  16. DULOXETINE HYDROCHLORIDE [Concomitant]
     Active Substance: DULOXETINE HYDROCHLORIDE
  17. VITAMIN D3 [Concomitant]
     Active Substance: CHOLECALCIFEROL
  18. BUPROPION [Concomitant]
     Active Substance: BUPROPION
  19. ANASTROZOLE [Concomitant]
     Active Substance: ANASTROZOLE
  20. AMLODIPINE BESYLATE [Concomitant]
     Active Substance: AMLODIPINE BESYLATE
  21. ALBUTEROL SULFATE [Concomitant]
     Active Substance: ALBUTEROL SULFATE
  22. ALBUTEROL SULFATE [Concomitant]
     Active Substance: ALBUTEROL SULFATE
  23. SUPER MULTIPLE [Concomitant]

REACTIONS (2)
  - Pneumonia [Fatal]
  - Hospitalisation [Unknown]

NARRATIVE: CASE EVENT DATE: 20250101
